FAERS Safety Report 23378716 (Version 3)
Quarter: 2025Q1

REPORT INFORMATION
  Report Type: Report from Study
  Country: BR (occurrence: BR)
  Receive Date: 20240108
  Receipt Date: 20250320
  Transmission Date: 20250408
  Serious: Yes (Other)
  Sender: MYLAN
  Company Number: BR-MYLANLABS-2023M1003551

PATIENT
  Age: 72 Year
  Sex: Female
  Weight: 56 kg

DRUGS (16)
  1. XALATAN [Suspect]
     Active Substance: LATANOPROST
     Indication: Glaucoma
  2. XALATAN [Suspect]
     Active Substance: LATANOPROST
     Route: 047
  3. XALATAN [Suspect]
     Active Substance: LATANOPROST
     Route: 047
  4. XALATAN [Suspect]
     Active Substance: LATANOPROST
  5. LATANOPROST\TIMOLOL MALEATE [Suspect]
     Active Substance: LATANOPROST\TIMOLOL MALEATE
     Indication: Glaucoma
     Dosage: 1 GTT DROPS, QD (PM)
     Dates: start: 20180815
  6. LATANOPROST\TIMOLOL MALEATE [Suspect]
     Active Substance: LATANOPROST\TIMOLOL MALEATE
     Dosage: 1 GTT DROPS, QD (PM)
     Dates: start: 20180815
  7. LATANOPROST\TIMOLOL MALEATE [Suspect]
     Active Substance: LATANOPROST\TIMOLOL MALEATE
     Dosage: 1 GTT DROPS, QD (PM)
     Route: 047
     Dates: start: 20180815
  8. LATANOPROST\TIMOLOL MALEATE [Suspect]
     Active Substance: LATANOPROST\TIMOLOL MALEATE
     Dosage: 1 GTT DROPS, QD (PM)
     Route: 047
     Dates: start: 20180815
  9. LATANOPROST\TIMOLOL MALEATE [Suspect]
     Active Substance: LATANOPROST\TIMOLOL MALEATE
     Dosage: 1 GTT DROPS, QD (PM)
  10. LATANOPROST\TIMOLOL MALEATE [Suspect]
     Active Substance: LATANOPROST\TIMOLOL MALEATE
     Dosage: 1 GTT DROPS, QD (PM)
  11. LATANOPROST\TIMOLOL MALEATE [Suspect]
     Active Substance: LATANOPROST\TIMOLOL MALEATE
     Dosage: 1 GTT DROPS, QD (PM)
     Route: 047
  12. LATANOPROST\TIMOLOL MALEATE [Suspect]
     Active Substance: LATANOPROST\TIMOLOL MALEATE
     Dosage: 1 GTT DROPS, QD (PM)
     Route: 047
  13. LATANOPROST\TIMOLOL [Suspect]
     Active Substance: LATANOPROST\TIMOLOL
     Indication: Glaucoma
  14. LATANOPROST\TIMOLOL [Suspect]
     Active Substance: LATANOPROST\TIMOLOL
     Route: 047
  15. LATANOPROST\TIMOLOL [Suspect]
     Active Substance: LATANOPROST\TIMOLOL
     Route: 047
  16. LATANOPROST\TIMOLOL [Suspect]
     Active Substance: LATANOPROST\TIMOLOL

REACTIONS (7)
  - Blindness [Not Recovered/Not Resolved]
  - Fracture [Not Recovered/Not Resolved]
  - Weight decreased [Not Recovered/Not Resolved]
  - Body height decreased [Not Recovered/Not Resolved]
  - Off label use [Unknown]
  - Product quality issue [Unknown]
  - Overdose [Unknown]

NARRATIVE: CASE EVENT DATE: 20230105
